FAERS Safety Report 5409297-2 (Version None)
Quarter: 2007Q3

REPORT INFORMATION
  Report Type: 
  Country: None (occurrence: None)
  Receive Date: 20070807
  Receipt Date: 20070807
  Transmission Date: 20080115
  Serious: No
  Sender: FDA-Public Use
  Company Number: None

PATIENT
  Age: 53 Year
  Sex: Female
  Weight: 76.6579 kg

DRUGS (1)
  1. EFFEXOR [Suspect]
     Indication: AFFECTIVE DISORDER
     Dosage: 75 MG 1/DAY PO
     Route: 048
     Dates: start: 20050601, end: 20070501

REACTIONS (13)
  - ARTHRALGIA [None]
  - BLOOD PRESSURE INCREASED [None]
  - FEELING ABNORMAL [None]
  - FLATULENCE [None]
  - FOOD CRAVING [None]
  - GLUCOSE TOLERANCE IMPAIRED [None]
  - HEADACHE [None]
  - HYPERHIDROSIS [None]
  - MUSCLE TWITCHING [None]
  - MYALGIA [None]
  - NEUROPATHY PERIPHERAL [None]
  - PARAESTHESIA [None]
  - WEIGHT INCREASED [None]
